FAERS Safety Report 15942054 (Version 1)
Quarter: 2019Q1

REPORT INFORMATION
  Report Type: Spontaneous
  Country: US (occurrence: US)
  Receive Date: 20190209
  Receipt Date: 20190209
  Transmission Date: 20190417
  Serious: No
  Sender: FDA-Public Use
  Company Number: US-009507513-1902USA001981

PATIENT
  Sex: Male

DRUGS (1)
  1. ASMANEX [Suspect]
     Active Substance: MOMETASONE FUROATE
     Dosage: ONE DOSE AT NIGHT
     Route: 055

REACTIONS (4)
  - No adverse event [Unknown]
  - Product availability issue [Unknown]
  - Wrong strength [Unknown]
  - Intentional product misuse [Unknown]
